FAERS Safety Report 6273182-7 (Version None)
Quarter: 2009Q3

REPORT INFORMATION
  Report Type: 
  Country: None (occurrence: None)
  Receive Date: 20090720
  Receipt Date: 20090715
  Transmission Date: 20100115
  Serious: Yes (Death, Hospitalization)
  Sender: FDA-Public Use
  Company Number: US-BRISTOL-MYERS SQUIBB COMPANY-14704936

PATIENT
  Age: 67 Year
  Sex: Female
  Weight: 108 kg

DRUGS (3)
  1. CARBOPLATIN [Suspect]
     Indication: NON-SMALL CELL LUNG CANCER
     Dosage: STARTED ON 04MAY09
     Dates: start: 20090504, end: 20090615
  2. TAXOL [Suspect]
     Indication: NON-SMALL CELL LUNG CANCER
     Dosage: STARTED ON 04MAY09
     Dates: start: 20090504, end: 20090615
  3. RADIATION THERAPY [Suspect]
     Indication: NON-SMALL CELL LUNG CANCER
     Dosage: 1 DF= 6600CGY. NO OF FRACTION: 33. ELASPSED DAYS:49
     Dates: start: 20090618

REACTIONS (1)
  - DEATH [None]
